FAERS Safety Report 18994756 (Version 2)
Quarter: 2021Q2

REPORT INFORMATION
  Report Type: Spontaneous
  Country: GB (occurrence: GB)
  Receive Date: 20210310
  Receipt Date: 20210427
  Transmission Date: 20210717
  Serious: Yes (Other)
  Sender: FDA-Public Use
  Company Number: GB-VERTEX PHARMACEUTICALS-2021-003753

PATIENT
  Age: 7 Year
  Sex: Male

DRUGS (5)
  1. ORKAMBI [Suspect]
     Active Substance: IVACAFTOR\LUMACAFTOR
     Indication: CYSTIC FIBROSIS
     Dosage: 2 TABLETS, BID (TWICE A DAY)
     Route: 048
     Dates: start: 202012
  2. BECLOMETHASONE [BECLOMETASONE] [Concomitant]
     Active Substance: BECLOMETHASONE
     Dosage: UNK
  3. CREON [Concomitant]
     Active Substance: PANCRELIPASE AMYLASE\PANCRELIPASE LIPASE\PANCRELIPASE PROTEASE
  4. SALBUTAMOL [Concomitant]
     Active Substance: ALBUTEROL
  5. CETIRIZINE [Concomitant]
     Active Substance: CETIRIZINE HYDROCHLORIDE

REACTIONS (2)
  - Staphylococcal infection [Unknown]
  - Pulmonary function test decreased [Recovered/Resolved]

NARRATIVE: CASE EVENT DATE: 2021
